FAERS Safety Report 9985173 (Version 1)
Quarter: 2014Q1

REPORT INFORMATION
  Report Type: Report from Study
  Country: US (occurrence: US)
  Receive Date: 20140307
  Receipt Date: 20140307
  Transmission Date: 20141002
  Serious: No
  Sender: FDA-Public Use
  Company Number: US-ABBVIE-13P-163-1184613-00

PATIENT
  Age: 65 Year
  Sex: Female

DRUGS (8)
  1. HUMIRA [Suspect]
     Indication: COLITIS ULCERATIVE
     Dates: start: 20131126
  2. APRISO [Concomitant]
     Indication: COLITIS ULCERATIVE
     Route: 048
  3. IMURAN [Concomitant]
     Indication: COLITIS ULCERATIVE
     Route: 048
  4. VENTOLIN [Concomitant]
     Indication: ASTHMA
     Dosage: AS NEEDED
     Route: 055
  5. MVI [Concomitant]
     Indication: VITAMIN SUPPLEMENTATION
     Route: 048
  6. VITAMIN C [Concomitant]
     Indication: VITAMIN SUPPLEMENTATION
     Route: 048
  7. IRON [Concomitant]
     Indication: ANAEMIA
     Route: 048
  8. CALCIUM [Concomitant]
     Indication: MINERAL SUPPLEMENTATION

REACTIONS (1)
  - Abdominal pain [Not Recovered/Not Resolved]
